FAERS Safety Report 13599311 (Version 3)
Quarter: 2018Q1

REPORT INFORMATION
  Report Type: Spontaneous
  Country: US (occurrence: US)
  Receive Date: 20170531
  Receipt Date: 20180314
  Transmission Date: 20180508
  Serious: Yes (Other)
  Sender: FDA-Public Use
  Company Number: US-BAYER-2017-097107

PATIENT
  Age: 8 Year
  Sex: Male

DRUGS (4)
  1. KOGENATE FS [Suspect]
     Active Substance: ANTIHEMOPHILIC FACTOR, HUMAN RECOMBINANT
     Indication: FACTOR VIII DEFICIENCY
     Dosage: 1500 IU, QOD
     Dates: start: 20171019
  2. KOGENATE FS [Suspect]
     Active Substance: ANTIHEMOPHILIC FACTOR, HUMAN RECOMBINANT
     Indication: FACTOR VIII DEFICIENCY
     Dosage: 4500 IU (2 PROPHYLACTIC AND 1 PRN DOSE TO TREAT BLEED)
     Route: 042
  3. KOGENATE FS [Suspect]
     Active Substance: ANTIHEMOPHILIC FACTOR, HUMAN RECOMBINANT
     Indication: FACTOR VIII DEFICIENCY
     Dosage: 1500 IU, QOD AND PRN
     Dates: start: 20170425
  4. KOGENATE FS [Suspect]
     Active Substance: ANTIHEMOPHILIC FACTOR, HUMAN RECOMBINANT
     Indication: FACTOR VIII DEFICIENCY
     Dosage: 1000 IU, QOD
     Route: 042
     Dates: start: 20180209

REACTIONS (3)
  - Central venous catheter removal [None]
  - Haemarthrosis [Recovered/Resolved]
  - Haemarthrosis [None]

NARRATIVE: CASE EVENT DATE: 20180213
